FAERS Safety Report 26167679 (Version 1)
Quarter: 2025Q4

REPORT INFORMATION
  Report Type: Spontaneous
  Country: US (occurrence: US)
  Receive Date: 20251217
  Receipt Date: 20251217
  Transmission Date: 20260117
  Serious: Yes (Other)
  Sender: MACLEODS
  Company Number: US-MLMSERVICE-20251203-PI734580-00129-2

PATIENT

DRUGS (7)
  1. DOXYCYCLINE [Suspect]
     Active Substance: DOXYCYCLINE
     Indication: Fatigue
     Route: 065
  2. DOXYCYCLINE [Suspect]
     Active Substance: DOXYCYCLINE
     Indication: Malaise
  3. DOXYCYCLINE [Suspect]
     Active Substance: DOXYCYCLINE
     Indication: Productive cough
  4. PREDNISONE [Concomitant]
     Active Substance: PREDNISONE
     Indication: Fatigue
     Dosage: 100 MG PREDNISONE DAILY FOR FOUR TO SIX WEEKS
     Route: 065
  5. PREDNISONE [Concomitant]
     Active Substance: PREDNISONE
     Indication: Malaise
  6. PREDNISONE [Concomitant]
     Active Substance: PREDNISONE
     Indication: Productive cough
  7. ALLOPURINOL [Concomitant]
     Active Substance: ALLOPURINOL
     Dosage: 300 MG ALLOPURINOL DAILY
     Route: 065
     Dates: start: 2021

REACTIONS (1)
  - Drug reaction with eosinophilia and systemic symptoms [Unknown]
